FAERS Safety Report 12275257 (Version 4)
Quarter: 2016Q2

REPORT INFORMATION
  Report Type: Report from Study
  Country: PT (occurrence: PT)
  Receive Date: 20160415
  Receipt Date: 20160527
  Transmission Date: 20160815
  Serious: Yes (Hospitalization, Other)
  Sender: FDA-Public Use
  Company Number: PT-BRISTOL-MYERS SQUIBB COMPANY-BMS-2016-027563

PATIENT
  Age: 73 Year
  Sex: Male
  Weight: 70.4 kg

DRUGS (4)
  1. NIVOLUMAB [Suspect]
     Active Substance: NIVOLUMAB
     Dosage: 211 MG, UNK
     Route: 065
     Dates: start: 20160310, end: 20160310
  2. NIVOLUMAB [Suspect]
     Active Substance: NIVOLUMAB
     Indication: NON-SMALL CELL LUNG CANCER
     Dosage: 212 MG, UNK
     Route: 065
     Dates: start: 20160211, end: 20160211
  3. NIVOLUMAB [Suspect]
     Active Substance: NIVOLUMAB
     Dosage: 208 MG, UNK
     Route: 065
     Dates: start: 20160324, end: 20160324
  4. NIVOLUMAB [Suspect]
     Active Substance: NIVOLUMAB
     Dosage: 214 MG, UNK
     Route: 065
     Dates: start: 20160225, end: 20160225

REACTIONS (1)
  - Atrial fibrillation [Recovered/Resolved]

NARRATIVE: CASE EVENT DATE: 20160407
